FAERS Safety Report 12785337 (Version 1)
Quarter: 2016Q3

REPORT INFORMATION
  Report Type: Spontaneous
  Country: US (occurrence: US)
  Receive Date: 20160927
  Receipt Date: 20160927
  Transmission Date: 20161109
  Serious: Yes (Other)
  Sender: FDA-Public Use
  Company Number: US-SA-2016SA173119

PATIENT
  Age: 62 Year
  Sex: Female

DRUGS (3)
  1. TOUJEO [Suspect]
     Active Substance: INSULIN GLARGINE
     Indication: TYPE 2 DIABETES MELLITUS
     Dosage: DOSE: 45 UNITS, 37 UNITS
     Route: 065
     Dates: start: 201609
  2. SOLOSTAR [Concomitant]
     Active Substance: DEVICE
     Indication: TYPE 2 DIABETES MELLITUS
     Dates: start: 201609
  3. NOVOLOG [Concomitant]
     Active Substance: INSULIN ASPART

REACTIONS (8)
  - Asthenia [Unknown]
  - Diaphragmatic disorder [Unknown]
  - Product use issue [Unknown]
  - Hepatic cirrhosis [Unknown]
  - Hepatic steatosis [Unknown]
  - Diabetes mellitus inadequate control [Unknown]
  - Non-alcoholic steatohepatitis [Unknown]
  - Pancreatic disorder [Unknown]
